FAERS Safety Report 11824233 (Version 4)
Quarter: 2016Q1

REPORT INFORMATION
  Report Type: Report from Study
  Country: CA (occurrence: CA)
  Receive Date: 20151210
  Receipt Date: 20160229
  Transmission Date: 20160525
  Serious: Yes (Hospitalization)
  Sender: FDA-Public Use
  Company Number: CA-BAXTER-2015BAX065153

PATIENT
  Age: 50 Year
  Sex: Female

DRUGS (27)
  1. ENDOXAN 1G [Suspect]
     Active Substance: CYCLOPHOSPHAMIDE
     Indication: MALIGNANT NEOPLASM PROGRESSION
     Dosage: 8 CYCLES
     Route: 065
  2. DOXORUBICIN [Suspect]
     Active Substance: DOXORUBICIN
     Indication: MALIGNANT NEOPLASM PROGRESSION
     Route: 042
     Dates: start: 20150918
  3. PREDNISONE. [Suspect]
     Active Substance: PREDNISONE
     Indication: MALIGNANT NEOPLASM PROGRESSION
     Dosage: 8 CYCLES
     Route: 065
  4. PREDNISONE. [Suspect]
     Active Substance: PREDNISONE
     Route: 042
     Dates: start: 20150917
  5. PREDNISONE. [Suspect]
     Active Substance: PREDNISONE
     Dosage: 100 (UNIT NOT REPORTED), MOST RECENT DOSE PRIOR TO THE EVENT
     Route: 042
     Dates: start: 20151122
  6. RED BLOOD CELLS [Concomitant]
     Active Substance: HUMAN RED BLOOD CELL
     Route: 065
     Dates: start: 20151120, end: 20151120
  7. ENDOXAN 1G [Suspect]
     Active Substance: CYCLOPHOSPHAMIDE
     Dosage: 1283 (UNIT NOT REPORTED) (1 IN 21 DAY), MOST RECENT DOSE PRIOR TO THE EVENT
     Route: 042
     Dates: start: 20151117
  8. OBINUTUZUMAB [Suspect]
     Active Substance: OBINUTUZUMAB
     Dosage: MOST RECENT DOSE PRIOR TO EVENT
     Route: 042
     Dates: start: 20151117
  9. VINCRISTINE [Suspect]
     Active Substance: VINCRISTINE
     Indication: MALIGNANT NEOPLASM PROGRESSION
     Dosage: 8 CYCLES
     Route: 065
  10. OBINUTUZUMAB [Suspect]
     Active Substance: OBINUTUZUMAB
     Indication: MALIGNANT NEOPLASM PROGRESSION
     Dosage: FOR 3 WEEKS (CYCLE 1)
     Route: 042
     Dates: start: 20150917
  11. GDC-0199 (ABT-199) [Suspect]
     Active Substance: VENETOCLAX
     Dosage: 800 (UNIT NOT REPORTED)
     Route: 048
     Dates: start: 20151222
  12. DOMPERIDONE [Concomitant]
     Active Substance: DOMPERIDONE
     Indication: ABDOMINAL PAIN
     Route: 065
     Dates: start: 201506, end: 20151101
  13. FISH OIL [Concomitant]
     Active Substance: FISH OIL
     Indication: SUPPLEMENTATION THERAPY
     Route: 065
     Dates: start: 2012
  14. RED BLOOD CELLS [Concomitant]
     Active Substance: HUMAN RED BLOOD CELL
     Indication: ANAEMIA
     Route: 065
     Dates: start: 20151024, end: 20151024
  15. ENDOXAN 1G [Suspect]
     Active Substance: CYCLOPHOSPHAMIDE
     Route: 042
     Dates: start: 20150918
  16. VINCRISTINE [Suspect]
     Active Substance: VINCRISTINE
     Route: 042
     Dates: start: 20150918
  17. RITUXIMAB [Suspect]
     Active Substance: RITUXIMAB
     Indication: MALIGNANT NEOPLASM PROGRESSION
     Dosage: X 4, INDUCTION
     Route: 065
  18. VITAMIN D [Concomitant]
     Active Substance: CHOLECALCIFEROL
     Indication: PRODUCT USED FOR UNKNOWN INDICATION
     Route: 065
  19. DOXORUBICIN [Suspect]
     Active Substance: DOXORUBICIN
     Dosage: 85.5 (UNIT NOT REPORTED), MOST RECENT DOSE PRIOR TO THE EVENT
     Route: 042
     Dates: start: 20151117
  20. DEXILANT [Concomitant]
     Active Substance: DEXLANSOPRAZOLE
     Indication: ABDOMINAL PAIN
     Route: 065
     Dates: start: 20150807, end: 20151122
  21. GDC-0199 (ABT-199) [Suspect]
     Active Substance: VENETOCLAX
     Dosage: 800 (UNIT NOT REPORTED), MOST RECENT DOSE PRIOR TO EVENT
     Route: 048
     Dates: start: 20151122
  22. OBINUTUZUMAB [Suspect]
     Active Substance: OBINUTUZUMAB
     Dosage: FOR 7 DOSES (CYCLE 1 OF 1 IN 21 DAYS)
     Route: 042
  23. VINCRISTINE [Suspect]
     Active Substance: VINCRISTINE
     Dosage: 2 (UNIT NOT REPORTED), MOST RECENT DOSE PRIOR TO THE EVENT
     Route: 042
     Dates: start: 20151117
  24. ALLOPURINOL. [Concomitant]
     Active Substance: ALLOPURINOL
     Indication: PROPHYLAXIS
     Route: 065
     Dates: start: 20150917
  25. CODEINE [Concomitant]
     Active Substance: CODEINE
     Indication: COUGH
     Route: 065
     Dates: start: 20151106, end: 20151120
  26. GDC-0199 (ABT-199) [Suspect]
     Active Substance: VENETOCLAX
     Indication: MALIGNANT NEOPLASM PROGRESSION
     Dosage: 800 (UNIT NOT REPORTED)
     Route: 048
     Dates: start: 20150921
  27. RITUXIMAB [Suspect]
     Active Substance: RITUXIMAB
     Dosage: 8 CYCLES
     Route: 065
     Dates: end: 201505

REACTIONS (1)
  - Duodenal ulcer perforation [Recovered/Resolved]

NARRATIVE: CASE EVENT DATE: 20151122
